FAERS Safety Report 18712528 (Version 1)
Quarter: 2021Q1

REPORT INFORMATION
  Report Type: Spontaneous
  Country: US (occurrence: US)
  Receive Date: 20210107
  Receipt Date: 20210107
  Transmission Date: 20210419
  Serious: Yes (Hospitalization)
  Sender: FDA-Public Use
  Company Number: None

PATIENT
  Age: 51 Year
  Sex: Female
  Weight: 99 kg

DRUGS (8)
  1. METOPROLOL TARTRATE. [Concomitant]
     Active Substance: METOPROLOL TARTRATE
  2. ASPIRIN. [Concomitant]
     Active Substance: ASPIRIN
  3. LANTUS [Concomitant]
     Active Substance: INSULIN GLARGINE
  4. HUMALOG [Concomitant]
     Active Substance: INSULIN LISPRO
  5. TRADJENTA [Suspect]
     Active Substance: LINAGLIPTIN
  6. ATORVASTATIN [Concomitant]
     Active Substance: ATORVASTATIN
  7. CHANTIX [Suspect]
     Active Substance: VARENICLINE TARTRATE
     Indication: EX-TOBACCO USER
     Dosage: ?          QUANTITY:1 TABLET(S);?
     Route: 048
     Dates: start: 20201124, end: 20201126
  8. RAMIPRIL. [Concomitant]
     Active Substance: RAMIPRIL

REACTIONS (8)
  - Insomnia [None]
  - Nightmare [None]
  - Balance disorder [None]
  - Emotional distress [None]
  - Sleep deficit [None]
  - Hypotension [None]
  - Therapy cessation [None]
  - Gait disturbance [None]

NARRATIVE: CASE EVENT DATE: 20201126
